FAERS Safety Report 9132833 (Version 1)
Quarter: 2013Q1

REPORT INFORMATION
  Report Type: Spontaneous
  Country: US (occurrence: US)
  Receive Date: 20130107
  Receipt Date: 20130107
  Transmission Date: 20140127
  Serious: Yes (Other)
  Sender: FDA-Public Use
  Company Number: US-FRI-1000041414

PATIENT
  Sex: Female

DRUGS (1)
  1. BYSTOLIC [Suspect]
     Dosage: 10 MG

REACTIONS (1)
  - Cardiac failure [Unknown]
